FAERS Safety Report 12466908 (Version 2)
Quarter: 2016Q3

REPORT INFORMATION
  Report Type: Report from Study
  Country: PK (occurrence: PK)
  Receive Date: 20160615
  Receipt Date: 20160701
  Transmission Date: 20161109
  Serious: Yes (Hospitalization, Other)
  Sender: FDA-Public Use
  Company Number: PHHY2016PK081178

PATIENT
  Age: 47 Year
  Sex: Male

DRUGS (2)
  1. EXFORGE HCT [Suspect]
     Active Substance: AMLODIPINE BESYLATE\HYDROCHLOROTHIAZIDE\VALSARTAN
     Indication: HYPERTENSION
     Dosage: 1 DF (AMLODIPINE 5 MG, HYDROCHLOROTHIAZIDE 12.5 MG, VALSARTAN 160 MG), BID
     Route: 048
     Dates: start: 20140101
  2. INSULIN [Concomitant]
     Active Substance: INSULIN NOS
     Indication: PRODUCT USED FOR UNKNOWN INDICATION
     Dosage: UNK
     Route: 065
     Dates: start: 20140408

REACTIONS (7)
  - Blood glucose increased [Unknown]
  - Fall [Unknown]
  - Aphasia [Unknown]
  - Gait disturbance [Unknown]
  - Motor dysfunction [Unknown]
  - Hemiplegia [Recovering/Resolving]
  - Off label use [Not Recovered/Not Resolved]

NARRATIVE: CASE EVENT DATE: 20140408
